FAERS Safety Report 6047646-5 (Version None)
Quarter: 2009Q1

REPORT INFORMATION
  Report Type: 
  Country: None (occurrence: None)
  Receive Date: 20090123
  Receipt Date: 20080819
  Transmission Date: 20090719
  Serious: No
  Sender: FDA-Public Use
  Company Number: A0743312A

PATIENT

DRUGS (2)
  1. HYCAMTIN [Suspect]
     Route: 065
  2. UNKNOWN [Concomitant]

REACTIONS (1)
  - NEUROPATHY PERIPHERAL [None]
